FAERS Safety Report 20430514 (Version 1)
Quarter: 2022Q1

REPORT INFORMATION
  Report Type: Report from Study
  Country: FR (occurrence: FR)
  Receive Date: 20220204
  Receipt Date: 20220204
  Transmission Date: 20220423
  Serious: Yes (Hospitalization)
  Sender: FDA-Public Use
  Company Number: FR-SERVIER-S20009875

PATIENT

DRUGS (8)
  1. ONCASPAR [Suspect]
     Active Substance: PEGASPARGASE
     Indication: Acute lymphocytic leukaemia
     Dosage: 1875 IU, QD, D15
     Route: 042
     Dates: start: 20200605, end: 20200605
  2. VINCRISTINE SULFATE [Suspect]
     Active Substance: VINCRISTINE SULFATE
     Indication: Acute lymphocytic leukaemia
     Dosage: 2 MG, D15, D22
     Route: 042
     Dates: start: 20200605, end: 20200612
  3. MERCAPTOPURINE [Suspect]
     Active Substance: MERCAPTOPURINE
     Indication: Acute lymphocytic leukaemia
     Dosage: 89 MG, D1-14
     Route: 048
     Dates: start: 20200522, end: 20200604
  4. CYCLOPHOSPHAMIDE [Suspect]
     Active Substance: CYCLOPHOSPHAMIDE
     Indication: Acute lymphocytic leukaemia
     Dosage: 1500 MG, D1
     Route: 042
     Dates: start: 20200522, end: 20200522
  5. METHOTREXATE [Suspect]
     Active Substance: METHOTREXATE
     Indication: Acute lymphocytic leukaemia
     Dosage: 10 MG, D3
     Route: 037
     Dates: start: 20200525, end: 20200525
  6. CYTARABINE [Suspect]
     Active Substance: CYTARABINE
     Indication: Acute lymphocytic leukaemia
     Dosage: 100 MG, D3-6, D10-13
     Route: 058
     Dates: start: 20200525, end: 20200604
  7. CYTARABINE [Suspect]
     Active Substance: CYTARABINE
     Dosage: 30 MG, D3
     Route: 037
     Dates: start: 20200525, end: 20200525
  8. HYDROCORTISONE [Suspect]
     Active Substance: HYDROCORTISONE
     Indication: Acute lymphocytic leukaemia
     Dosage: 15 MG, D3
     Route: 037
     Dates: start: 20200525, end: 20200525

REACTIONS (2)
  - Dyskinesia [Recovered/Resolved]
  - General physical health deterioration [Recovered/Resolved]

NARRATIVE: CASE EVENT DATE: 20200612
